FAERS Safety Report 12207439 (Version 1)
Quarter: 2016Q1

REPORT INFORMATION
  Report Type: Spontaneous
  Country: US (occurrence: None)
  Receive Date: 20160323
  Receipt Date: 20160323
  Transmission Date: 20160526
  Serious: No
  Sender: FDA-Public Use
  Company Number: None

PATIENT
  Age: 60 Year
  Sex: Female

DRUGS (1)
  1. ADCIRCA [Suspect]
     Active Substance: TADALAFIL
     Indication: HELMINTHIC INFECTION
     Route: 048
     Dates: start: 20151210

REACTIONS (5)
  - Blood pressure decreased [None]
  - Dry skin [None]
  - Feeling of body temperature change [None]
  - Skin fissures [None]
  - Headache [None]

NARRATIVE: CASE EVENT DATE: 20151210
